FAERS Safety Report 25682788 (Version 3)
Quarter: 2025Q4

REPORT INFORMATION
  Report Type: Spontaneous
  Country: US (occurrence: US)
  Receive Date: 20250814
  Receipt Date: 20251006
  Transmission Date: 20260118
  Serious: No
  Sender: PFIZER
  Company Number: US-PFIZER INC-202500162357

PATIENT
  Age: 6 Year
  Sex: Female

DRUGS (1)
  1. NGENLA [Suspect]
     Active Substance: SOMATROGON-GHLA
     Dosage: UNK

REACTIONS (5)
  - Weight increased [Recovered/Resolved]
  - Hair growth abnormal [Not Recovered/Not Resolved]
  - Thirst [Recovered/Resolved]
  - Injection site pain [Recovered/Resolved]
  - Patient-device incompatibility [Unknown]
